FAERS Safety Report 9259631 (Version 1)
Quarter: 2013Q2

REPORT INFORMATION
  Report Type: Spontaneous
  Country: US (occurrence: US)
  Receive Date: 20130429
  Receipt Date: 20130429
  Transmission Date: 20140414
  Serious: Yes (Other)
  Sender: FDA-Public Use
  Company Number: US-BIOGENIDEC-2009BI001821

PATIENT
  Age: 38 Year
  Sex: Male

DRUGS (7)
  1. TYSABRI [Suspect]
     Indication: MULTIPLE SCLEROSIS
     Route: 042
     Dates: start: 20081208, end: 20090729
  2. TYSABRI [Suspect]
     Indication: MULTIPLE SCLEROSIS
     Route: 042
     Dates: start: 20101115
  3. AMPYRA [Concomitant]
     Route: 048
  4. BACLOFEN [Concomitant]
     Route: 048
  5. FLOMAX [Concomitant]
     Route: 048
  6. VITAMIN D [Concomitant]
     Route: 048
  7. VITAMIN E [Concomitant]
     Route: 048

REACTIONS (13)
  - Memory impairment [Not Recovered/Not Resolved]
  - Fall [Recovered/Resolved]
  - Drug specific antibody present [Unknown]
  - Drug effect decreased [Unknown]
  - Depression [Recovered/Resolved]
  - Anxiety [Unknown]
  - Head injury [Recovered/Resolved]
  - Fatigue [Not Recovered/Not Resolved]
  - Asthenia [Recovered/Resolved]
  - Viral infection [Recovered/Resolved]
  - Contusion [Recovered/Resolved]
  - Skin haemorrhage [Recovered/Resolved]
  - Erythema [Recovered/Resolved]
